FAERS Safety Report 4929111-9 (Version None)
Quarter: 2006Q1

REPORT INFORMATION
  Report Type: 
  Country: None (occurrence: None)
  Receive Date: 20060301
  Receipt Date: 20041202
  Transmission Date: 20060701
  Serious: Yes (Hospitalization)
  Sender: FDA-Public Use
  Company Number: CH-ROCHE-388043

PATIENT
  Age: 56 Year
  Sex: Male
  Weight: 108 kg

DRUGS (4)
  1. PEG-INTERFERON ALFA 2A (RO 25-8310) [Suspect]
     Dosage: FORM: INJECTION
     Route: 058
     Dates: start: 20041019, end: 20041130
  2. RIBAVIRIN [Suspect]
     Route: 048
     Dates: start: 20041019, end: 20041130
  3. ZESTRIL [Concomitant]
     Dates: start: 20040915
  4. ASPIRIN [Concomitant]
     Dosage: TOTAL DAILY DOSE REPORTED AS 100.
     Dates: start: 20040915, end: 20041130

REACTIONS (4)
  - DYSPNOEA [None]
  - HEPATIC FAILURE [None]
  - TACHYPNOEA [None]
  - WEIGHT INCREASED [None]
